FAERS Safety Report 5728288-5 (Version None)
Quarter: 2008Q2

REPORT INFORMATION
  Report Type: 
  Country: None (occurrence: None)
  Receive Date: 20080430
  Receipt Date: 20080415
  Transmission Date: 20081010
  Serious: Yes (Hospitalization)
  Sender: FDA-Public Use
  Company Number: 2008S1006337

PATIENT
  Age: 57 Year
  Sex: Male

DRUGS (7)
  1. SUNITINIB MALATE (SUNITINIB MALATE) (50 MG) [Suspect]
     Indication: RENAL CELL CARCINOMA
     Dosage: 50 MG;DAILY;ORAL
     Route: 048
     Dates: start: 20060712, end: 20071203
  2. SUNITINIB MALATE (SUNITINIB MALATE) (50 MG) [Suspect]
     Indication: RENAL CELL CARCINOMA
     Dosage: 50 MG;DAILY;ORAL
     Route: 048
     Dates: start: 20080114
  3. LOPERAMIDE HYDROCHLORIDE [Suspect]
     Indication: DIARRHOEA
     Dosage: 2 MG;ORAL
     Route: 048
     Dates: start: 20071129
  4. VERAPAMIL HYDROCHLORIDE [Concomitant]
  5. URSODIOL [Concomitant]
  6. ERTYTHROPOIETIN [Concomitant]
  7. THYROID HORMONES [Concomitant]

REACTIONS (7)
  - CHOLELITHIASIS [None]
  - DIARRHOEA [None]
  - DISEASE PROGRESSION [None]
  - HYPONATRAEMIA [None]
  - LUNG DISORDER [None]
  - LYMPHADENOPATHY [None]
  - SUBILEUS [None]
